FAERS Safety Report 14907209 (Version 2)
Quarter: 2018Q3

REPORT INFORMATION
  Report Type: Spontaneous
  Country: US (occurrence: US)
  Receive Date: 20180517
  Receipt Date: 20180731
  Transmission Date: 20181010
  Serious: No
  Sender: FDA-Public Use
  Company Number: PHEH2018US018225

PATIENT
  Age: 70 Year
  Sex: Female

DRUGS (2)
  1. TRAVATAN [Concomitant]
     Active Substance: TRAVOPROST
     Indication: PRODUCT USED FOR UNKNOWN INDICATION
     Dosage: UNK UNK, QHS
     Route: 047
  2. AZOPT [Suspect]
     Active Substance: BRINZOLAMIDE
     Indication: OPEN ANGLE GLAUCOMA
     Dosage: UNK, BID
     Route: 047
     Dates: start: 20180305

REACTIONS (8)
  - Conjunctivitis [Recovered/Resolved]
  - Rhinitis [Unknown]
  - Eye pain [Unknown]
  - Lacrimation increased [Unknown]
  - Eye pruritus [Recovered/Resolved]
  - Eye irritation [Unknown]
  - Visual impairment [Unknown]
  - Ocular hyperaemia [Unknown]

NARRATIVE: CASE EVENT DATE: 20180428
